FAERS Safety Report 6733645-4 (Version None)
Quarter: 2010Q2

REPORT INFORMATION
  Report Type: 
  Country: None (occurrence: None)
  Receive Date: 20100518
  Receipt Date: 20100512
  Transmission Date: 20101027
  Serious: Yes (Disabling, Other)
  Sender: FDA-Public Use
  Company Number: SP02864

PATIENT
  Age: 57 Year
  Sex: Female
  Weight: 64.8644 kg

DRUGS (6)
  1. OSMOPREP [Suspect]
     Indication: COLONOSCOPY
     Dosage: ORAL
     Route: 048
     Dates: start: 20100316, end: 20100316
  2. LISINOPRIL [Concomitant]
  3. DULCOLAX [Concomitant]
  4. PRAVACHOL [Concomitant]
  5. MIRALAX [Concomitant]
  6. ZESTRIL [Concomitant]

REACTIONS (4)
  - ACUTE PHOSPHATE NEPHROPATHY [None]
  - CONDITION AGGRAVATED [None]
  - GASTROINTESTINAL DISORDER [None]
  - RENAL FAILURE [None]
